FAERS Safety Report 4588974-X (Version None)
Quarter: 2005Q1

REPORT INFORMATION
  Report Type: 
  Country: None (occurrence: None)
  Receive Date: 20050125
  Receipt Date: 20040917
  Transmission Date: 20050727
  Serious: No
  Sender: FDA-Public Use
  Company Number: USA030742573

PATIENT
  Age: 63 Year
  Sex: Male
  Weight: 59 kg

DRUGS (19)
  1. FORTEO [Suspect]
     Indication: OSTEOPOROSIS
     Dates: start: 20030601
  2. PROZAC [Concomitant]
  3. METHADONE [Concomitant]
  4. NEXIUM [Concomitant]
  5. ELAVIL [Concomitant]
  6. NEURONTIN [Concomitant]
  7. ROBAXIN [Concomitant]
  8. NAPROSYN [Concomitant]
  9. DURAGESIC (FENTANYL) [Concomitant]
  10. TYLOX [Concomitant]
  11. NORVASC [Concomitant]
  12. RESTORIL [Concomitant]
  13. LASIX [Concomitant]
  14. POTASSIUM CHLORIDE [Concomitant]
  15. ALBUTEROL [Concomitant]
  16. METAMUCIL-2 [Concomitant]
  17. SENOKOT [Concomitant]
  18. SURFACTAL (AMBROXOL HYDROCHLORIDE) [Concomitant]
  19. ROBAXIN [Concomitant]

REACTIONS (5)
  - CONTUSION [None]
  - JOINT SPRAIN [None]
  - JOINT SWELLING [None]
  - OSTEOPOROSIS [None]
  - RASH [None]
